FAERS Safety Report 16288688 (Version 1)
Quarter: 2019Q2

REPORT INFORMATION
  Report Type: Report from Study
  Country: US (occurrence: US)
  Receive Date: 20190509
  Receipt Date: 20190509
  Transmission Date: 20190711
  Serious: Yes (Death, Hospitalization)
  Sender: FDA-Public Use
  Company Number: US-ROCHE-2310770

PATIENT
  Age: 58 Year
  Sex: Female

DRUGS (43)
  1. ASPIRIN [ACETYLSALICYLIC ACID] [Concomitant]
     Active Substance: ASPIRIN
  2. CLONIDINE. [Concomitant]
     Active Substance: CLONIDINE
  3. SORBITOL. [Concomitant]
     Active Substance: SORBITOL
  4. AMIODARONE [Concomitant]
     Active Substance: AMIODARONE
  5. MYCELEX [Concomitant]
     Active Substance: CLOTRIMAZOLE
  6. NORVASC [Concomitant]
     Active Substance: AMLODIPINE BESYLATE
  7. PREDNISONE. [Concomitant]
     Active Substance: PREDNISONE
  8. MYCOPHENOLATE MOFETIL. [Suspect]
     Active Substance: MYCOPHENOLATE MOFETIL
     Indication: IMMUNOSUPPRESSION
     Route: 065
  9. RANITIDINE. [Concomitant]
     Active Substance: RANITIDINE
  10. HEPARIN [Concomitant]
     Active Substance: HEPARIN SODIUM
  11. HUMALOG [Concomitant]
     Active Substance: INSULIN LISPRO
  12. CEFAZOLIN [Concomitant]
     Active Substance: CEFAZOLIN
  13. FAMOTIDINE. [Concomitant]
     Active Substance: FAMOTIDINE
  14. PIPERACILLIN. [Concomitant]
     Active Substance: PIPERACILLIN SODIUM
  15. THYMOGLOBULIN [Concomitant]
     Active Substance: LAPINE T-LYMPHOCYTE IMMUNE GLOBULIN
  16. VALGANCICLOVIR. [Concomitant]
     Active Substance: VALGANCICLOVIR
  17. FUROSEMIDE. [Concomitant]
     Active Substance: FUROSEMIDE
  18. INSULIN GLARGINE [Concomitant]
     Active Substance: INSULIN GLARGINE
  19. MAGNESIUM SULFATE. [Concomitant]
     Active Substance: MAGNESIUM SULFATE
  20. AMLODIPINE [Concomitant]
     Active Substance: AMLODIPINE BESYLATE
  21. TACROLIMUS. [Concomitant]
     Active Substance: TACROLIMUS
  22. METHYLPREDNISOLONE. [Concomitant]
     Active Substance: METHYLPREDNISOLONE
  23. NOVOLOG [Concomitant]
     Active Substance: INSULIN ASPART
  24. ACETAMINOPHEN. [Concomitant]
     Active Substance: ACETAMINOPHEN
  25. ALBUTEROL [SALBUTAMOL] [Concomitant]
     Active Substance: ALBUTEROL
  26. CALCIUM GLUCONATE. [Concomitant]
     Active Substance: CALCIUM GLUCONATE
  27. DIPHENHYDRAMINE. [Concomitant]
     Active Substance: DIPHENHYDRAMINE
  28. INSULIN HUMAN [Concomitant]
     Active Substance: INSULIN HUMAN
  29. PENTAMIDINE [Concomitant]
     Active Substance: PENTAMIDINE
  30. ATORVASTATIN [Concomitant]
     Active Substance: ATORVASTATIN
  31. ONDANSETRON [Concomitant]
     Active Substance: ONDANSETRON
  32. HYDROCODONE [Concomitant]
     Active Substance: HYDROCODONE
  33. COLACE [Concomitant]
     Active Substance: DOCUSATE SODIUM
  34. BLINDED QPI-1002 [Suspect]
     Active Substance: TEPRASIRAN
     Indication: DELAYED GRAFT FUNCTION
     Route: 042
     Dates: start: 20170421
  35. PANTOPRAZOLE [Concomitant]
     Active Substance: PANTOPRAZOLE
  36. POTASSIUM CHLORIDE. [Concomitant]
     Active Substance: POTASSIUM CHLORIDE
  37. CLOTRIMAZOLE. [Concomitant]
     Active Substance: CLOTRIMAZOLE
  38. DOCUSATE SODIUM. [Concomitant]
     Active Substance: DOCUSATE SODIUM
  39. BUMEX [Concomitant]
     Active Substance: BUMETANIDE
  40. HYDROMORPHONE [Concomitant]
     Active Substance: HYDROMORPHONE
  41. NORCO [Concomitant]
     Active Substance: ACETAMINOPHEN\HYDROCODONE BITARTRATE
  42. PIPERACILLIN/TAZOBACTAM [Concomitant]
     Active Substance: PIPERACILLIN SODIUM\TAZOBACTAM SODIUM
  43. EPOETIN ALFA [Concomitant]
     Active Substance: ERYTHROPOIETIN

REACTIONS (15)
  - Acute kidney injury [Recovered/Resolved with Sequelae]
  - Diarrhoea [Recovered/Resolved]
  - Fluid overload [Recovered/Resolved]
  - Septic shock [Recovered/Resolved]
  - Sepsis [Recovered/Resolved]
  - Graft loss [Recovered/Resolved]
  - Leukopenia [Recovered/Resolved]
  - Wound infection [Recovering/Resolving]
  - Urinary tract infection [Recovered/Resolved]
  - Abdominal injury [Recovered/Resolved]
  - Enterococcal infection [Recovered/Resolved]
  - Clostridium difficile colitis [Recovered/Resolved]
  - Major depression [Not Recovered/Not Resolved]
  - Anaemia [Recovered/Resolved with Sequelae]
  - Urosepsis [Recovered/Resolved]

NARRATIVE: CASE EVENT DATE: 20170424
